FAERS Safety Report 5467728-6 (Version None)
Quarter: 2007Q3

REPORT INFORMATION
  Report Type: 
  Country: None (occurrence: None)
  Receive Date: 20070814
  Receipt Date: 20070425
  Transmission Date: 20080115
  Serious: No
  Sender: FDA-Public Use
  Company Number: 200713132US

PATIENT
  Age: 67 Year
  Sex: Female

DRUGS (13)
  1. APIDRA [Suspect]
     Indication: TYPE 2 DIABETES MELLITUS
     Dosage: 5-7 U, INJ;
     Dates: start: 20070301
  2. FUROSEMIDE (LASIX (00032601/) [Concomitant]
  3. SPIRONOLACTONE (ALDACTONE  /0006201/) [Concomitant]
  4. POTASSIUM CHLORIDE (KLOR-CON [Concomitant]
  5. PARACETAMOL, DEXTROPROPOXYPHENE NAPSILATE (DARVOCET-N) [Concomitant]
  6. FENTANYL (DURAGESIC /00174601/) [Concomitant]
  7. GLYCERYL TRINITRATE (TRANSDERM PATCH) [Concomitant]
  8. ESTROGENIC SUBSTANCE [Concomitant]
  9. UBIDECARENONE, LEVOCARNITINE (COENZYME Q10 /03913201/) [Concomitant]
  10. VITAMIN D [Concomitant]
  11. VITAMINS NOS (MVI) [Concomitant]
  12. FISH OIL [Concomitant]
  13. LOPERAMIDE HYDROCHLORIDE (IMODIUM /00384302/) [Concomitant]

REACTIONS (3)
  - HEADACHE [None]
  - MYDRIASIS [None]
  - PHOTOSENSITIVITY REACTION [None]
